FAERS Safety Report 5242240-8 (Version None)
Quarter: 2007Q1

REPORT INFORMATION
  Report Type: 
  Country: None (occurrence: None)
  Receive Date: 20070215
  Receipt Date: 20070215
  Transmission Date: 20070707
  Serious: Yes (Death, Life-Threatening, Hospitalization, Disabling, Other)
  Sender: FDA-Public Use
  Company Number: None

PATIENT
  Sex: Male
  Weight: 79.3795 kg

DRUGS (5)
  1. MOBIC [Suspect]
     Indication: ANKYLOSING SPONDYLITIS
     Dosage: 17.0 MG DAILY 1 TAB DAILY MOUTH
     Route: 048
  2. HYTRIN [Concomitant]
  3. DOXYCYCLINE [Concomitant]
  4. ACETAMINOPHEN [Concomitant]
  5. MULTI-VITAMIN [Concomitant]

REACTIONS (3)
  - LOSS OF CONSCIOUSNESS [None]
  - MALAISE [None]
  - ULCER HAEMORRHAGE [None]
